FAERS Safety Report 20885338 (Version 1)
Quarter: 2022Q2

REPORT INFORMATION
  Report Type: Other
  Country: US (occurrence: None)
  Receive Date: 20220527
  Receipt Date: 20220527
  Transmission Date: 20220721
  Serious: Yes (Other)
  Sender: FDA-Public Use
  Company Number: US-ROCHE-3101392

PATIENT
  Sex: Female
  Weight: 99.880 kg

DRUGS (19)
  1. VALCYTE [Suspect]
     Active Substance: VALGANCICLOVIR HYDROCHLORIDE
     Indication: Renal transplant
     Route: 048
  2. CELLCEPT [Suspect]
     Active Substance: MYCOPHENOLATE MOFETIL
     Indication: Product used for unknown indication
     Route: 065
  3. NYSTATIN [Concomitant]
     Active Substance: NYSTATIN
  4. PREDNISONE [Concomitant]
     Active Substance: PREDNISONE
  5. TYLENOL EXTRA STRENGTH [Concomitant]
     Active Substance: ACETAMINOPHEN
  6. BENADRYL [Concomitant]
     Active Substance: DIPHENHYDRAMINE HYDROCHLORIDE
  7. COZAAR [Concomitant]
     Active Substance: LOSARTAN POTASSIUM
  8. K-DUR [Concomitant]
     Active Substance: POTASSIUM CHLORIDE
  9. SODIUM BICARBONATE [Concomitant]
     Active Substance: SODIUM BICARBONATE
  10. ENVARSUS XR [Concomitant]
     Active Substance: TACROLIMUS
  11. NORCO [Concomitant]
     Active Substance: ACETAMINOPHEN\HYDROCODONE BITARTRATE
  12. COREG [Concomitant]
     Active Substance: CARVEDILOL
  13. PROCARDIA XL [Concomitant]
     Active Substance: NIFEDIPINE
  14. COMPAZINE [Concomitant]
     Active Substance: PROCHLORPERAZINE MALEATE
  15. HEPARIN SODIUM [Concomitant]
     Active Substance: HEPARIN SODIUM
  16. ZOFRAN [Concomitant]
     Active Substance: ONDANSETRON HYDROCHLORIDE
  17. VITAMIN D2 [Concomitant]
     Active Substance: ERGOCALCIFEROL
  18. MYFORTIC [Concomitant]
     Active Substance: MYCOPHENOLATE SODIUM
  19. APRESOLINE HYDROCHLORIDE [Concomitant]
     Active Substance: HYDRALAZINE HYDROCHLORIDE

REACTIONS (6)
  - Cytomegalovirus test positive [Unknown]
  - Weight increased [Unknown]
  - Overweight [Unknown]
  - Obesity [Unknown]
  - Anxiety [Unknown]
  - Off label use [Unknown]
